FAERS Safety Report 23401493 (Version 1)
Quarter: 2024Q1

REPORT INFORMATION
  Report Type: Spontaneous
  Country: CN (occurrence: None)
  Receive Date: 20240115
  Receipt Date: 20240115
  Transmission Date: 20240409
  Serious: Yes (Other)
  Sender: FDA-Public Use
  Company Number: CN-ROCHE-3488308

PATIENT
  Age: 77 Year
  Sex: Female

DRUGS (14)
  1. GAZYVA [Suspect]
     Active Substance: OBINUTUZUMAB
     Indication: Diffuse large B-cell lymphoma recurrent
     Route: 041
     Dates: start: 20230217
  2. GAZYVA [Suspect]
     Active Substance: OBINUTUZUMAB
     Dosage: 08-MAY-2023, 01-JUN-2023, 02-AUG-2023, 12-SEP-2023: POLA+GCP; D1
     Route: 041
     Dates: start: 20230508
  3. POLIVY [Suspect]
     Active Substance: POLATUZUMAB VEDOTIN-PIIQ
     Indication: Diffuse large B-cell lymphoma recurrent
     Dosage: 08-MAY-2023, 01-JUN-2023, 02-AUG-2023, 12-SEP-2023: POLA+GCP; D1
     Route: 041
     Dates: start: 20230508
  4. PAXLOVID [Concomitant]
     Active Substance: NIRMATRELVIR\RITONAVIR
     Indication: COVID-19
     Dates: start: 20230703
  5. CYCLOPHOSPHAMIDE [Concomitant]
     Active Substance: CYCLOPHOSPHAMIDE
     Indication: Diffuse large B-cell lymphoma recurrent
     Dosage: 17-FEB-2023, 13-MAR-2023: G+MINICHOP; D1
     Route: 041
     Dates: start: 20230217
  6. CYCLOPHOSPHAMIDE [Concomitant]
     Active Substance: CYCLOPHOSPHAMIDE
     Dosage: 08-MAY-2023, 01-JUN-2023, 02-AUG-2023, 12-SEP-2023: POLA+GCP; D1
     Route: 041
     Dates: start: 20230508
  7. DOXORUBICIN [Concomitant]
     Active Substance: DOXORUBICIN
     Indication: Diffuse large B-cell lymphoma recurrent
     Dosage: 17-FEB-2023, 13-MAR-2023: G+MINICHOP; D1
     Route: 041
     Dates: start: 20230217
  8. VINDESINE [Concomitant]
     Active Substance: VINDESINE
     Indication: Diffuse large B-cell lymphoma recurrent
     Dosage: 17-FEB-2023, 13-MAR-2023: G+MINICHOP; D1
     Route: 042
     Dates: start: 20230217
  9. PREDNISONE [Concomitant]
     Active Substance: PREDNISONE
     Indication: Diffuse large B-cell lymphoma recurrent
     Dosage: 17-FEB-2023, 13-MAR-2023: G+MINICHOP; D1-5
     Route: 048
     Dates: start: 20230217
  10. PREDNISONE [Concomitant]
     Active Substance: PREDNISONE
     Dosage: 08-MAY-2023, 01-JUN-2023, 02-AUG-2023, 12-SEP-2023: POLA+GCP; D1-3
     Route: 048
     Dates: start: 20230508
  11. DEXAMETHASONE SODIUM PHOSPHATE [Concomitant]
     Active Substance: DEXAMETHASONE PHOSPHATE\DEXAMETHASONE SODIUM PHOSPHATE
     Route: 037
     Dates: start: 20230803
  12. METHOTREXATE [Concomitant]
     Active Substance: METHOTREXATE
     Dosage: 03-AUG-2023, 12-SEP-2023
     Route: 037
     Dates: start: 20230803
  13. RIVAROXABAN [Concomitant]
     Active Substance: RIVAROXABAN
     Indication: Thrombosis
     Dates: start: 20230504
  14. MOLNUPIRAVIR [Concomitant]
     Active Substance: MOLNUPIRAVIR
     Indication: COVID-19
     Dates: start: 20230602

REACTIONS (3)
  - Myelosuppression [Recovered/Resolved]
  - Septic shock [Recovered/Resolved]
  - Pneumonia [Recovering/Resolving]

NARRATIVE: CASE EVENT DATE: 20230423
